FAERS Safety Report 4631076-4 (Version None)
Quarter: 2005Q2

REPORT INFORMATION
  Report Type: 
  Country: None (occurrence: None)
  Receive Date: 20050406
  Receipt Date: 20050318
  Transmission Date: 20051028
  Serious: Yes (Other)
  Sender: FDA-Public Use
  Company Number: USA041287013

PATIENT
  Sex: Male
  Weight: 55 kg

DRUGS (1)
  1. ZYPREXA [Suspect]
     Dates: end: 20020101

REACTIONS (3)
  - LEUKOPENIA [None]
  - LYMPHOCYTE PERCENTAGE INCREASED [None]
  - NEUTROPHIL PERCENTAGE DECREASED [None]
